FAERS Safety Report 25215737 (Version 1)
Quarter: 2025Q2

REPORT INFORMATION
  Report Type: Spontaneous
  Country: US (occurrence: US)
  Receive Date: 20250418
  Receipt Date: 20250418
  Transmission Date: 20250717
  Serious: No
  Sender: BIOMARIN
  Company Number: US-BIOMARINAP-US-2025-165231

PATIENT

DRUGS (1)
  1. VOXZOGO [Suspect]
     Active Substance: VOSORITIDE
     Indication: Osteochondrodysplasia
     Dosage: 0.4 MILLIGRAM, QD
     Route: 058
     Dates: start: 20250410

REACTIONS (3)
  - Pallor [Recovered/Resolved]
  - Injection site reaction [Recovered/Resolved]
  - Injection site erythema [Recovered/Resolved]

NARRATIVE: CASE EVENT DATE: 20250410
